FAERS Safety Report 17822679 (Version 1)
Quarter: 2020Q2

REPORT INFORMATION
  Report Type: Spontaneous
  Country: US (occurrence: US)
  Receive Date: 20200526
  Receipt Date: 20200526
  Transmission Date: 20200714
  Serious: No
  Sender: FDA-Public Use
  Company Number: US-ASTRAZENECA-2020SE62103

PATIENT
  Sex: Female
  Weight: 56.7 kg

DRUGS (5)
  1. VENTOLIN [Concomitant]
     Active Substance: ALBUTEROL SULFATE
     Indication: PROPHYLAXIS
     Dosage: AS REQUIRED
  2. SYMBICORT [Suspect]
     Active Substance: BUDESONIDE\FORMOTEROL FUMARATE DIHYDRATE
     Indication: CHRONIC OBSTRUCTIVE PULMONARY DISEASE
     Dosage: 8/4.5 UG, TWO TIMES A DAY, SOMETIMES TAKE 1 PUFF
     Route: 055
  3. BUDESONIDE AND FORMOTEROL [Suspect]
     Active Substance: BUDESONIDE\FORMOTEROL
     Indication: CHRONIC OBSTRUCTIVE PULMONARY DISEASE
     Dosage: UNKNOWN, TWO TIMES A DAY
     Route: 055
     Dates: start: 202004
  4. SYMBICORT [Suspect]
     Active Substance: BUDESONIDE\FORMOTEROL FUMARATE DIHYDRATE
     Indication: ASTHMA
     Dosage: 8/4.5 UG, TWO TIMES A DAY, SOMETIMES TAKE 1 PUFF
     Route: 055
  5. BUDESONIDE AND FORMOTEROL [Suspect]
     Active Substance: BUDESONIDE\FORMOTEROL
     Indication: ASTHMA
     Dosage: UNKNOWN, TWO TIMES A DAY
     Route: 055
     Dates: start: 202004

REACTIONS (3)
  - Drug ineffective [Unknown]
  - Intentional product misuse [Unknown]
  - Dyspnoea [Unknown]
